FAERS Safety Report 9026425 (Version 1)
Quarter: 2013Q1

REPORT INFORMATION
  Report Type: Spontaneous
  Country: GB (occurrence: None)
  Receive Date: 20121231
  Receipt Date: 20121231
  Transmission Date: 20140127
  Serious: Yes (Hospitalization)
  Sender: FDA-Public Use
  Company Number: 219941

PATIENT
  Age: 36 Year
  Sex: Female

DRUGS (2)
  1. INNOHEP (TINZAPARIN SODIUM) [Suspect]
     Indication: ANTICOAGULANT THERAPY
     Dosage: 10000 IU (156 IU/KG, 1 IN 1 D), SUBCUTANEOUS
  2. HEPARIN [Suspect]
     Indication: ANTICOAGULANT THERAPY

REACTIONS (4)
  - Ischaemic stroke [None]
  - Off label use [None]
  - Incorrect drug administration duration [None]
  - Maternal exposure during pregnancy [None]
